FAERS Safety Report 6762215-7 (Version None)
Quarter: 2010Q2

REPORT INFORMATION
  Report Type: 
  Country: None (occurrence: None)
  Receive Date: 20100609
  Receipt Date: 20100526
  Transmission Date: 20101027
  Serious: Yes (Hospitalization, Other)
  Sender: FDA-Public Use
  Company Number: PHHY2009JP55000

PATIENT
  Sex: Female

DRUGS (4)
  1. ZOMETA [Suspect]
     Indication: METASTASES TO BONE
     Dosage: 4 MG DAILY
     Route: 041
     Dates: start: 20060713, end: 20080306
  2. ZOMETA [Suspect]
     Dosage: 3 MG DAILY
     Route: 041
     Dates: start: 20080821, end: 20081211
  3. ZOMETA [Suspect]
     Dosage: 2 MG DAILY
     Route: 041
     Dates: start: 20090129, end: 20091022
  4. AREDIA [Concomitant]
     Indication: METASTASES TO BONE
     Dosage: UNK
     Route: 041
     Dates: start: 20050621, end: 20060608

REACTIONS (7)
  - BONE DISORDER [None]
  - BONE NEOPLASM [None]
  - DEBRIDEMENT [None]
  - OSTEONECROSIS OF JAW [None]
  - RENAL IMPAIRMENT [None]
  - TOOTH EXTRACTION [None]
  - TOOTH LOSS [None]
